FAERS Safety Report 4709171-0 (Version None)
Quarter: 2005Q3

REPORT INFORMATION
  Report Type: 
  Country: None (occurrence: None)
  Receive Date: 20050705
  Receipt Date: 20050624
  Transmission Date: 20060218
  Serious: Yes (Other)
  Sender: FDA-Public Use
  Company Number: 2005063372

PATIENT
  Sex: Male

DRUGS (7)
  1. DILANTIN KAPSEAL [Suspect]
     Indication: CONVULSION
     Dosage: (1 IN 1 D), ORAL
     Route: 048
     Dates: start: 19700101
  2. KEPPRA [Suspect]
     Indication: CONVULSION
     Dosage: 3000 (1500 MG, 2 IN 1 D), ORAL
     Route: 048
     Dates: start: 20000101, end: 20041101
  3. DEPAKOTE [Suspect]
     Indication: CONVULSION
     Dosage: 1500 MG (1 IN 1 D)
     Dates: start: 20041101
  4. ZONISAMIDE (ZONISAMIDE) [Suspect]
     Indication: CONVULSION
     Dosage: 600 MG (300 MG, 2 IN 1 D), ORAL
     Route: 048
     Dates: start: 20020101
  5. ZONEGRAN [Concomitant]
  6. ATENOLOL [Concomitant]
  7. LEXAPRO [Concomitant]

REACTIONS (9)
  - ABNORMAL BEHAVIOUR [None]
  - ANTICONVULSANT TOXICITY [None]
  - DEPRESSION [None]
  - DIZZINESS [None]
  - GAIT DISTURBANCE [None]
  - HYPERTENSION [None]
  - IDEAS OF REFERENCE [None]
  - NYSTAGMUS [None]
  - PHARMACEUTICAL PRODUCT COMPLAINT [None]
